FAERS Safety Report 8387529 (Version 6)
Quarter: 2013Q2

REPORT INFORMATION
  Report Type: Report from Study
  Country: BE (occurrence: BE)
  Receive Date: 20120202
  Receipt Date: 20130619
  Transmission Date: 20140414
  Serious: Yes (Hospitalization, Other)
  Sender: FDA-Public Use
  Company Number: PHHO2012BE001726

PATIENT
  Sex: 0

DRUGS (18)
  1. EVEROLIMUS [Suspect]
     Indication: RENAL TRANSPLANT
     Dosage: 1 MG, BID
     Route: 048
     Dates: start: 20110806
  2. EVEROLIMUS [Suspect]
     Dosage: 0.25 MG, BID
     Route: 048
     Dates: start: 20120426
  3. EVEROLIMUS [Suspect]
     Dosage: 0.375 MG, QD
     Route: 048
  4. EVEROLIMUS [Suspect]
     Dosage: 0.25 MG, BID
     Route: 048
     Dates: start: 20120809, end: 20120814
  5. MYFORTIC [Suspect]
     Indication: RENAL TRANSPLANT
     Dosage: 720 MG, BID
     Route: 048
     Dates: start: 20110502
  6. PREDNISOLONE [Suspect]
     Indication: RENAL TRANSPLANT
     Dosage: 4 MG, QD
     Route: 048
     Dates: start: 20110622, end: 20120813
  7. PREDNISOLONE [Suspect]
     Dosage: 32 MG, BID
     Route: 048
     Dates: start: 20120813, end: 20120814
  8. PREDNISOLONE [Suspect]
     Dosage: 25 MG, QD
     Route: 048
     Dates: start: 20120817
  9. PREDNISOLONE [Suspect]
     Dosage: 15 MG, BID
     Route: 048
     Dates: start: 201212, end: 20130109
  10. PREDNISOLONE [Suspect]
     Dosage: 10 MG, BID
     Route: 048
     Dates: start: 20130113
  11. RAMIPRIL [Suspect]
     Indication: HYPERTENSION
     Dosage: 2.5 MG, QD
     Route: 048
     Dates: start: 20110527, end: 20130109
  12. RAMIPRIL [Suspect]
     Dosage: 5 MG, QD
     Route: 048
     Dates: start: 201301
  13. CICLOSPORIN [Suspect]
     Dosage: 100 MG, BID
     Dates: start: 20120814
  14. SIMVASTATINE [Concomitant]
     Indication: PROPHYLAXIS
     Dosage: 10 MG, QD
     Dates: start: 20110608, end: 20130109
  15. SIMVASTATINE [Concomitant]
     Dosage: 20 MG, QD
     Dates: start: 20130110
  16. ACE INHIBITORS [Concomitant]
     Dosage: UNK
  17. DIURETICS [Concomitant]
  18. VITAMIN D3 [Concomitant]

REACTIONS (15)
  - Pulmonary hypertension [Not Recovered/Not Resolved]
  - Pyrexia [Recovering/Resolving]
  - Cough [Recovering/Resolving]
  - Inflammation [Recovering/Resolving]
  - Proteinuria [Unknown]
  - Bronchitis [Recovered/Resolved]
  - Oedema peripheral [Recovered/Resolved]
  - Renal failure [Recovering/Resolving]
  - C-reactive protein increased [Recovered/Resolved]
  - Kidney transplant rejection [Recovering/Resolving]
  - Diabetes mellitus [Not Recovered/Not Resolved]
  - Urinary tract infection [Not Recovered/Not Resolved]
  - Trichomoniasis [Not Recovered/Not Resolved]
  - Urosepsis [Unknown]
  - Hyperglycaemia [Recovered/Resolved]
